FAERS Safety Report 24592568 (Version 2)
Quarter: 2025Q2

REPORT INFORMATION
  Report Type: Other
  Country: NL (occurrence: NL)
  Receive Date: 20241108
  Receipt Date: 20250513
  Transmission Date: 20250717
  Serious: Yes (Other)
  Sender: NOVA LABORATORIES LIMITED
  Company Number: NL-Nova Laboratories Limited-2164671

PATIENT
  Age: 46 Year
  Sex: Male

DRUGS (5)
  1. PURIXAN [Suspect]
     Active Substance: MERCAPTOPURINE
     Indication: Colitis ulcerative
  2. ENTYVIO [Suspect]
     Active Substance: VEDOLIZUMAB
  3. FILGOTINIB [Suspect]
     Active Substance: FILGOTINIB
  4. PREDNISOLONE [Suspect]
     Active Substance: PREDNISOLONE
  5. INFLIXIMAB [Suspect]
     Active Substance: INFLIXIMAB

REACTIONS (2)
  - Kaposi^s sarcoma [Unknown]
  - Off label use [Unknown]
